FAERS Safety Report 21750016 (Version 1)
Quarter: 2022Q4

REPORT INFORMATION
  Report Type: Spontaneous
  Country: None (occurrence: IT)
  Receive Date: 20221219
  Receipt Date: 20221219
  Transmission Date: 20230113
  Serious: Yes (Other)
  Sender: FDA-Public Use
  Company Number: IT-B.Braun Medical Inc.-2135970

PATIENT
  Age: 40 Year
  Sex: Male

DRUGS (22)
  1. CEFTRIAXONE SODIUM [Suspect]
     Active Substance: CEFTRIAXONE SODIUM
  2. LOPINAVIR\RITONAVIR [Suspect]
     Active Substance: LOPINAVIR\RITONAVIR
  3. AZITHROMYCIN [Suspect]
     Active Substance: AZITHROMYCIN
  4. OSELTAMIVIR [Suspect]
     Active Substance: OSELTAMIVIR
  5. ANAKINRA [Suspect]
     Active Substance: ANAKINRA
  6. ETHACRYNIC ACID [Suspect]
     Active Substance: ETHACRYNIC ACID
  7. FUROSEMIDE [Suspect]
     Active Substance: FUROSEMIDE
  8. NEBIVOLOL [Suspect]
     Active Substance: NEBIVOLOL
  9. OMEPRAZOLE [Suspect]
     Active Substance: OMEPRAZOLE
  10. PROPOFOL [Suspect]
     Active Substance: PROPOFOL
  11. FENTANYL [Suspect]
     Active Substance: FENTANYL
  12. MIDAZOLAM [Suspect]
     Active Substance: MIDAZOLAM
  13. CISATRACURIUM [Suspect]
     Active Substance: CISATRACURIUM
  14. NOREPINEPHRINE [Suspect]
     Active Substance: NOREPINEPHRINE
  15. ENOXAPARIN [Suspect]
     Active Substance: ENOXAPARIN
  16. ALBUMIN HUMAN [Suspect]
     Active Substance: ALBUMIN HUMAN
  17. MEROPENEM [Suspect]
     Active Substance: MEROPENEM
  18. LINEZOLID [Suspect]
     Active Substance: LINEZOLID
  19. CELECOXIB [Suspect]
     Active Substance: CELECOXIB
  20. PREDNISONE [Suspect]
     Active Substance: PREDNISONE
  21. HYDROXYZINE [Suspect]
     Active Substance: HYDROXYZINE HYDROCHLORIDE
  22. DAPTOMYCIN [Suspect]
     Active Substance: DAPTOMYCIN

REACTIONS (1)
  - Drug reaction with eosinophilia and systemic symptoms [Recovered/Resolved]
